FAERS Safety Report 6137241-1 (Version None)
Quarter: 2009Q1

REPORT INFORMATION
  Report Type: 
  Country: None (occurrence: None)
  Receive Date: 20090330
  Receipt Date: 20090319
  Transmission Date: 20090719
  Serious: Yes (Death)
  Sender: FDA-Public Use
  Company Number: FR-JNJFOC-20080905440

PATIENT
  Sex: Female
  Weight: 72 kg

DRUGS (1)
  1. TOPALGIC [Suspect]
     Indication: ACCIDENTAL DRUG INTAKE BY CHILD
     Route: 048

REACTIONS (3)
  - ACCIDENTAL OVERDOSE [None]
  - ACUTE PULMONARY OEDEMA [None]
  - VISCERAL CONGESTION [None]
